FAERS Safety Report 4286643-7 (Version None)
Quarter: 2004Q1

REPORT INFORMATION
  Report Type: 
  Country: None (occurrence: None)
  Receive Date: 20040206
  Receipt Date: 20040129
  Transmission Date: 20041129
  Serious: Yes (Other)
  Sender: FDA-Public Use
  Company Number: WAES 0401DEU00163

PATIENT
  Age: 60 Year
  Sex: Male

DRUGS (5)
  1. FOSAMAX [Suspect]
     Route: 048
     Dates: start: 20040105, end: 20040113
  2. ASPIRIN [Concomitant]
     Route: 048
     Dates: start: 20020101
  3. CLOPIDOGREL BISULFATE [Concomitant]
     Indication: PERIPHERAL OCCLUSIVE DISEASE
     Route: 048
     Dates: start: 20020101
  4. ENALAPRIL MALEATE AND HYDROCHLOROTHIAZIDE [Concomitant]
     Indication: HYPERTENSION
     Route: 048
     Dates: start: 20000101
  5. TAMSULOSIN HYDROCHLORIDE [Suspect]
     Indication: BENIGN PROSTATIC HYPERPLASIA
     Route: 048

REACTIONS (3)
  - BLOOD CREATINE PHOSPHOKINASE INCREASED [None]
  - DRUG INTERACTION [None]
  - MUSCLE CRAMP [None]
